FAERS Safety Report 7507957-0 (Version None)
Quarter: 2011Q2

REPORT INFORMATION
  Report Type: 
  Country: None (occurrence: None)
  Receive Date: 20110527
  Receipt Date: 20110525
  Transmission Date: 20111010
  Serious: Yes (Other)
  Sender: FDA-Public Use
  Company Number: US-B.I. PHARMACEUTICALS,INC./RIDGEFIELD-2011-BP-11025BP

PATIENT
  Sex: Female

DRUGS (6)
  1. HYDROCHLOROTHIAZIDE [Concomitant]
     Indication: HYPERTENSION
     Dosage: 25 MG
     Route: 048
  2. AMLODIPINE [Concomitant]
     Indication: HYPERTENSION
     Dosage: 2.5 MG
     Route: 048
  3. SPIRIVA [Suspect]
     Indication: DYSPNOEA
     Dosage: 18 MCG
     Route: 055
     Dates: start: 20060101
  4. ATENOLOL [Concomitant]
     Indication: HYPERTENSION
     Dosage: 25 MG
     Route: 048
  5. SIMVASTATIN [Concomitant]
     Indication: BLOOD CHOLESTEROL INCREASED
     Dosage: 40 MG
     Route: 048
  6. PROAIR HFA [Concomitant]
     Indication: DYSPNOEA
     Route: 055

REACTIONS (2)
  - LUNG CARCINOMA CELL TYPE UNSPECIFIED STAGE IV [None]
  - DYSPNOEA [None]
